FAERS Safety Report 12909686 (Version 1)
Quarter: 2016Q4

REPORT INFORMATION
  Report Type: Report from Study
  Country: US (occurrence: US)
  Receive Date: 20161104
  Receipt Date: 20161104
  Transmission Date: 20170207
  Serious: Yes (Other)
  Sender: FDA-Public Use
  Company Number: US-ROCHE-1846571

PATIENT

DRUGS (7)
  1. IFOSFAMIDE. [Suspect]
     Active Substance: IFOSFAMIDE
     Indication: B-CELL LYMPHOMA
     Dosage: 2 G/M2 ON DAYS 1-3
     Route: 065
  2. FILGRASTIM [Concomitant]
     Active Substance: FILGRASTIM
     Dosage: BEGINNING ON DAY 10 OF THE LAST CYCLE TO FACILITATE PERIPHERAL STEM CELL MOBILIZATION.
     Route: 065
  3. MITOXANTRONE [Suspect]
     Active Substance: MITOXANTRONE HYDROCHLORIDE
     Indication: B-CELL LYMPHOMA
     Dosage: GIVEN ON DAY 1 ONLY
     Route: 065
  4. RITUXIMAB [Suspect]
     Active Substance: RITUXIMAB
     Indication: B-CELL LYMPHOMA
     Dosage: ADMINISTERED PRIOR TO EACH CHEMOTHERAPY CYCLE AND ON DAY 7 OF CYCLE 3 PRIOR TO STEM CELL COLLECTION.
     Route: 042
  5. MESNA. [Concomitant]
     Active Substance: MESNA
  6. ETOPOSIDE. [Suspect]
     Active Substance: ETOPOSIDE
     Indication: B-CELL LYMPHOMA
     Dosage: ON DAYS 1-3
     Route: 065
  7. FILGRASTIM [Concomitant]
     Active Substance: FILGRASTIM
     Dosage: BEGINNING ON DAY 4 UNTIL RESOLUTION OF NEUTROPENIA
     Route: 065

REACTIONS (4)
  - Neutropenia [Unknown]
  - Thrombocytopenia [Unknown]
  - Lichen planus [Unknown]
  - Oral lichen planus [Unknown]
